FAERS Safety Report 15419481 (Version 1)
Quarter: 2018Q4

REPORT INFORMATION
  Report Type: Spontaneous
  Country: US (occurrence: US)
  Receive Date: 20180924
  Receipt Date: 20180924
  Transmission Date: 20190204
  Serious: No
  Sender: FDA-Public Use
  Company Number: US-SA-2018SA262331

PATIENT
  Sex: Female

DRUGS (1)
  1. ACT ANTICAVITY FLUORIDE CINNAMON [Suspect]
     Active Substance: SODIUM FLUORIDE
     Indication: PRODUCT USED FOR UNKNOWN INDICATION
     Dosage: UNK
     Route: 065
     Dates: start: 20180916

REACTIONS (3)
  - Product taste abnormal [Unknown]
  - Product colour issue [Unknown]
  - Product packaging issue [Unknown]
